FAERS Safety Report 8209752-6 (Version None)
Quarter: 2012Q1

REPORT INFORMATION
  Report Type: 
  Country: None (occurrence: None)
  Receive Date: 20120314
  Receipt Date: 20120301
  Transmission Date: 20120608
  Serious: Yes (Death)
  Sender: FDA-Public Use
  Company Number: FR-ELI_LILLY_AND_COMPANY-FR201203000048

PATIENT
  Sex: Male

DRUGS (7)
  1. MORPHINE SULFATE [Concomitant]
     Dosage: 16.8 UNK, UNK
  2. LEXOMIL [Concomitant]
     Dosage: 5 MG, QD
  3. TERCIAN [Concomitant]
     Dosage: 200 MG, QD
     Route: 048
  4. VALIUM [Concomitant]
     Dosage: UNK, UNKNOWN
  5. ZYPREXA [Suspect]
     Dosage: 10 MG, UNKNOWN
     Route: 048
  6. EQUANIL [Concomitant]
     Dosage: 1200 MG, QD
     Route: 048
  7. DURAGESIC-100 [Concomitant]
     Dosage: UNK UNK, UNKNOWN

REACTIONS (4)
  - RENAL FAILURE [None]
  - WITHDRAWAL SYNDROME [None]
  - RESPIRATORY DISTRESS [None]
  - SEPTIC SHOCK [None]
